FAERS Safety Report 10046950 (Version 1)
Quarter: 2014Q1

REPORT INFORMATION
  Report Type: Spontaneous
  Country: US (occurrence: None)
  Receive Date: 20140328
  Receipt Date: 20140328
  Transmission Date: 20141002
  Serious: Yes (Other)
  Sender: FDA-Public Use
  Company Number: None

PATIENT
  Age: 49 Year
  Sex: Female
  Weight: 80.74 kg

DRUGS (3)
  1. DULOXETINE [Suspect]
     Indication: DEPRESSION
     Dosage: DEC 13 - JAN. 2014, 60 MG DAILY PO
     Route: 048
     Dates: start: 201312, end: 201401
  2. DULOXETINE [Suspect]
     Indication: ANXIETY
     Dosage: DEC 13 - JAN. 2014, 60 MG DAILY PO
     Route: 048
     Dates: start: 201312, end: 201401
  3. DULOXETINE [Suspect]
     Indication: NECK PAIN
     Dosage: DEC 13 - JAN. 2014, 60 MG DAILY PO
     Route: 048
     Dates: start: 201312, end: 201401

REACTIONS (6)
  - Dizziness [None]
  - Headache [None]
  - Depressive symptom [None]
  - Neck pain [None]
  - Condition aggravated [None]
  - Product substitution issue [None]
